FAERS Safety Report 8340671-0 (Version None)
Quarter: 2012Q2

REPORT INFORMATION
  Report Type: 
  Country: None (occurrence: None)
  Receive Date: 20120507
  Receipt Date: 20120426
  Transmission Date: 20120825
  Serious: Yes (Other)
  Sender: FDA-Public Use
  Company Number: US-ASTRAZENECA-2012SE27761

PATIENT
  Sex: Male

DRUGS (1)
  1. SEROQUEL [Suspect]
     Route: 048

REACTIONS (5)
  - PITUITARY TUMOUR [None]
  - NEPHROLITHIASIS [None]
  - WEIGHT INCREASED [None]
  - MESENTERITIS [None]
  - KIDNEY ENLARGEMENT [None]
